FAERS Safety Report 5690628-3 (Version None)
Quarter: 2008Q1

REPORT INFORMATION
  Report Type: 
  Country: None (occurrence: None)
  Receive Date: 20080331
  Receipt Date: 20080331
  Transmission Date: 20080703
  Serious: Yes (Life-Threatening, Hospitalization, Other)
  Sender: FDA-Public Use
  Company Number: None

PATIENT
  Age: 15 Year
  Sex: Female
  Weight: 65.7716 kg

DRUGS (1)
  1. SINGULAIR [Suspect]
     Indication: ASTHMA
     Dosage: 10 MG 1 TAB DAILY PO
     Route: 048
     Dates: start: 20050912, end: 20080328

REACTIONS (9)
  - ANXIETY [None]
  - ATTENTION DEFICIT/HYPERACTIVITY DISORDER [None]
  - CONVULSION [None]
  - DEPRESSION [None]
  - INTENTIONAL SELF-INJURY [None]
  - LIMB INJURY [None]
  - OVERDOSE [None]
  - PAIN [None]
  - SUICIDE ATTEMPT [None]
